FAERS Safety Report 20418678 (Version 1)
Quarter: 2022Q1

REPORT INFORMATION
  Report Type: Spontaneous
  Country: US (occurrence: US)
  Receive Date: 20220202
  Receipt Date: 20220202
  Transmission Date: 20220423
  Serious: No
  Sender: FDA-Public Use
  Company Number: US-SA-SAC20220130000354

PATIENT
  Age: 67 Year
  Sex: Male

DRUGS (1)
  1. DUPIXENT [Suspect]
     Active Substance: DUPILUMAB
     Dosage: 300 MG/2 ML, OTHER
     Route: 058
     Dates: start: 20210728

REACTIONS (3)
  - Eye pruritus [Unknown]
  - Injection site irritation [Unknown]
  - Arthralgia [Unknown]
